FAERS Safety Report 4504301-8 (Version None)
Quarter: 2004Q4

REPORT INFORMATION
  Report Type: 
  Country: None (occurrence: None)
  Receive Date: 20041115
  Receipt Date: 20041020
  Transmission Date: 20050328
  Serious: Yes (Other)
  Sender: FDA-Public Use
  Company Number: STA-AE-04-MTX-523

PATIENT
  Age: 60 Year
  Sex: Female

DRUGS (9)
  1. METHOTREXATE [Suspect]
     Indication: RHEUMATOID ARTHRITIS
     Dosage: 7.5 MG 1X PER 1 WK, ORAL
     Route: 048
     Dates: end: 20031110
  2. ENBREL [Suspect]
     Indication: RHEUMATOID ARTHRITIS
     Dosage: 25 MG 2X PER 1 WK, SC
     Route: 058
     Dates: end: 20031110
  3. LEXAPRO [Concomitant]
  4. KLONOPIN [Concomitant]
  5. SONATA [Concomitant]
  6. RISEDRONATE (RISEDRONATE) [Concomitant]
  7. PREMARIN [Concomitant]
  8. LORTAB [Concomitant]
  9. ALLEGRA [Concomitant]

REACTIONS (1)
  - CHRONIC SINUSITIS [None]
